FAERS Safety Report 26036988 (Version 1)
Quarter: 2025Q4

REPORT INFORMATION
  Report Type: Spontaneous
  Country: CN (occurrence: CN)
  Receive Date: 20251112
  Receipt Date: 20251112
  Transmission Date: 20260117
  Serious: Yes (Other)
  Sender: PFIZER
  Company Number: CN-PFIZER INC-PV202500132107

PATIENT
  Age: 79 Year
  Sex: Female
  Weight: 50 kg

DRUGS (1)
  1. EPIRUBICIN [Suspect]
     Active Substance: EPIRUBICIN
     Indication: Plasma cell myeloma
     Dosage: 20 MG, 1X/DAY
     Route: 041
     Dates: start: 20251028, end: 20251031

REACTIONS (6)
  - Atrial fibrillation [Recovering/Resolving]
  - Chest discomfort [Not Recovered/Not Resolved]
  - Palpitations [Recovering/Resolving]
  - Dyspnoea [Not Recovered/Not Resolved]
  - Cough [Unknown]
  - Productive cough [Unknown]

NARRATIVE: CASE EVENT DATE: 20251001
